FAERS Safety Report 16739915 (Version 2)
Quarter: 2019Q3

REPORT INFORMATION
  Report Type: Report from Study
  Country: DE (occurrence: DE)
  Receive Date: 20190826
  Receipt Date: 20190831
  Transmission Date: 20191005
  Serious: Yes (Death, Hospitalization, Other)
  Sender: FDA-Public Use
  Company Number: DE-AUROBINDO-AUR-APL-2019-055528

PATIENT

DRUGS (15)
  1. PREDNISOLONE. [Suspect]
     Active Substance: PREDNISOLONE
     Indication: B-CELL LYMPHOMA
     Dosage: 100 MILLIGRAM (D1-16)
     Route: 048
     Dates: start: 20171030, end: 20180213
  2. CYCLOPHOSPHAMID [Suspect]
     Active Substance: CYCLOPHOSPHAMIDE
     Indication: B-CELL LYMPHOMA
     Dosage: 1520 MILLIGRAM, ONCE IN EVERY TWO WEEKS (14DAY)
     Route: 042
     Dates: start: 20171107, end: 20180130
  3. CLEXANE [Concomitant]
     Active Substance: ENOXAPARIN SODIUM
     Indication: ARRHYTHMIA
     Dosage: 60 MILLIGRAM, TWO TIMES A DAY
     Route: 048
     Dates: start: 20180103, end: 20180226
  4. LANTUS [Concomitant]
     Active Substance: INSULIN GLARGINE
     Indication: DIABETES MELLITUS
     Dosage: 3 MILLILITER, ONCE A DAY
     Route: 058
     Dates: start: 201801, end: 20180226
  5. FORXIGA [Concomitant]
     Active Substance: DAPAGLIFLOZIN
     Indication: DIABETES MELLITUS
     Dosage: 5 MILLIGRAM, ONCE A DAY
     Route: 048
     Dates: end: 20180102
  6. SALOFALK [Concomitant]
     Indication: DIVERTICULUM
     Dosage: 500 MILLIGRAM 2 TABLETS 3 TIMES A DYA
     Route: 048
     Dates: end: 201801
  7. LENOGRASTIM [Suspect]
     Active Substance: LENOGRASTIM
     Indication: B-CELL LYMPHOMA
     Dosage: 34 MICROGRAM (D4-13)
     Route: 058
     Dates: start: 20171110, end: 20180211
  8. METOHEXAL [Concomitant]
     Active Substance: METOPROLOL
     Indication: HYPERTENSION
     Dosage: 190 MILLIGRAM, TWO TIMES A DAY (0.5-0-0.5)
     Route: 048
  9. DOXEPIN [Concomitant]
     Active Substance: DOXEPIN
     Indication: DEPRESSION
     Dosage: 50 MILLIGRAM, ONCE A DAY
     Route: 048
  10. DEKRISTOL [Concomitant]
     Active Substance: CHOLECALCIFEROL
     Indication: VITAMIN D DEFICIENCY
     Dosage: 20000 INTERNATIONAL UNIT, ONCE A DAY
     Route: 048
  11. VINCRISTINE SULFATE LIPOSOME INJECTION [Suspect]
     Active Substance: VINCRISTINE SULFATE
     Indication: B-CELL LYMPHOMA
     Dosage: 3.34 MILLIGRAM ONCE IN EVERY TWO WEEKS (14 DAY)
     Route: 042
     Dates: start: 20171107, end: 20180130
  12. DOXORUBICIN [Suspect]
     Active Substance: DOXORUBICIN
     Indication: B-CELL LYMPHOMA
     Dosage: 100 MILLIGRAM, ONCE IN EVERY TWO WEEK (14DAY)
     Route: 042
     Dates: start: 20171107, end: 20180130
  13. RITUXIMAB. [Suspect]
     Active Substance: RITUXIMAB
     Indication: B-CELL LYMPHOMA
     Dosage: 760 MILLIGRAM, ONCE IN EVERY TWO WEEKS (14 DAY)
     Route: 042
     Dates: start: 20171107, end: 20180213
  14. XELEVIA [Concomitant]
     Active Substance: SITAGLIPTIN PHOSPHATE
     Indication: DIABETES MELLITUS
     Dosage: 50 MILLIGRAM, TWO TIMES A DAY
     Route: 048
  15. VALSACOR [Concomitant]
     Active Substance: VALSARTAN
     Indication: HYPERTENSION
     Dosage: 320 MILLIGRAM, ONCE A DAY
     Route: 048

REACTIONS (2)
  - Hepatic failure [Fatal]
  - Hyperglycaemia [Not Recovered/Not Resolved]

NARRATIVE: CASE EVENT DATE: 20180223
